FAERS Safety Report 17270611 (Version 1)
Quarter: 2020Q1

REPORT INFORMATION
  Report Type: Spontaneous
  Country: SE (occurrence: SE)
  Receive Date: 20200114
  Receipt Date: 20200114
  Transmission Date: 20200409
  Serious: Yes (Hospitalization)
  Sender: FDA-Public Use
  Company Number: SE-BEH-2020111590

PATIENT
  Age: 2 Year
  Sex: Female
  Weight: 11 kg

DRUGS (8)
  1. PRIVIGEN [Suspect]
     Active Substance: HUMAN IMMUNOGLOBULIN G
     Dosage: 220 MILLILITER (2 G/KG)
     Route: 042
     Dates: start: 20191209, end: 20191209
  2. PIPERACILLIN/TAZOBACTAM [Concomitant]
     Active Substance: PIPERACILLIN SODIUM\TAZOBACTAM SODIUM
     Route: 065
  3. TROMBYL [Concomitant]
     Active Substance: ASPIRIN
     Route: 065
  4. PRIVIGEN [Suspect]
     Active Substance: HUMAN IMMUNOGLOBULIN G
     Indication: KAWASAKI^S DISEASE
     Dosage: 220 MILLILITER (2 G/KG)
     Route: 042
     Dates: start: 20191207, end: 20191207
  5. ALVEDON [Concomitant]
     Active Substance: ACETAMINOPHEN
     Route: 065
  6. ISOCEF [CEFTIBUTEN] [Concomitant]
     Route: 065
  7. ERTAPENEM. [Concomitant]
     Active Substance: ERTAPENEM SODIUM
     Route: 065
  8. MERONEM [Concomitant]
     Active Substance: MEROPENEM
     Route: 065

REACTIONS (1)
  - Neutropenia [Recovered/Resolved]

NARRATIVE: CASE EVENT DATE: 20191210
